FAERS Safety Report 17450540 (Version 1)
Quarter: 2020Q1

REPORT INFORMATION
  Report Type: Spontaneous
  Country: NL (occurrence: NL)
  Receive Date: 20200224
  Receipt Date: 20200224
  Transmission Date: 20200409
  Serious: Yes (Hospitalization)
  Sender: FDA-Public Use
  Company Number: NL-PERRIGO-20NL002460

PATIENT
  Age: 78 Year
  Sex: Female

DRUGS (2)
  1. FLUCLOXACILLIN [Suspect]
     Active Substance: FLUCLOXACILLIN
     Indication: STAPHYLOCOCCAL BACTERAEMIA
     Dosage: 6 G, QD
     Route: 042
  2. ACETAMINOPHEN. [Suspect]
     Active Substance: ACETAMINOPHEN
     Indication: ANALGESIC THERAPY
     Dosage: 1 GRAM, QID
     Route: 048

REACTIONS (3)
  - Metabolic encephalopathy [Recovered/Resolved]
  - Acute respiratory distress syndrome [Recovered/Resolved]
  - Metabolic acidosis [Recovered/Resolved]
